FAERS Safety Report 23845554 (Version 1)
Quarter: 2024Q2

REPORT INFORMATION
  Report Type: Report from Study
  Country: US (occurrence: US)
  Receive Date: 20240511
  Receipt Date: 20240511
  Transmission Date: 20240716
  Serious: Yes (Other)
  Sender: FDA-Public Use
  Company Number: US-TEVA-VS-3188792

PATIENT
  Age: 41 Year
  Sex: Female

DRUGS (1)
  1. CLARAVIS [Suspect]
     Active Substance: ISOTRETINOIN
     Indication: Product used for unknown indication
     Route: 065

REACTIONS (7)
  - Unintended pregnancy [Unknown]
  - Dry skin [Unknown]
  - Xerosis [Unknown]
  - Acne [Unknown]
  - Papule [Unknown]
  - Post inflammatory pigmentation change [Unknown]
  - Macule [Unknown]
